FAERS Safety Report 22532821 (Version 1)
Quarter: 2023Q2

REPORT INFORMATION
  Report Type: Spontaneous
  Country: DE (occurrence: DE)
  Receive Date: 20230607
  Receipt Date: 20230607
  Transmission Date: 20230722
  Serious: Yes (Death, Other)
  Sender: FDA-Public Use
  Company Number: DE-BoehringerIngelheim-2022-BI-170260

PATIENT
  Age: 61 Year
  Sex: Male
  Weight: 90 kg

DRUGS (2)
  1. DOCETAXEL [Suspect]
     Active Substance: DOCETAXEL
     Indication: Lung adenocarcinoma
     Dosage: 75 MG/KG, QD (FORM OF ADMIN: LIQUID)
     Route: 042
     Dates: start: 20220419
  2. NINTEDANIB [Suspect]
     Active Substance: NINTEDANIB
     Indication: Lung adenocarcinoma
     Dosage: 200 MG (0.5 DAY)
     Route: 048
     Dates: start: 20220420, end: 20220501

REACTIONS (13)
  - Dyspnoea [Fatal]
  - Respiratory failure [Unknown]
  - Respiratory failure [Unknown]
  - Respiratory distress [Unknown]
  - Anxiety [Unknown]
  - Rheumatoid arthritis [Unknown]
  - Chronic obstructive pulmonary disease [Unknown]
  - Hypertension [Unknown]
  - Dyspnoea [Unknown]
  - Throat irritation [Unknown]
  - Hypothyroidism [Unknown]
  - Balance disorder [Unknown]
  - Asthenia [Not Recovered/Not Resolved]

NARRATIVE: CASE EVENT DATE: 20220425
